FAERS Safety Report 8953488 (Version 1)
Quarter: 2012Q4

REPORT INFORMATION
  Report Type: 
  Country: US (occurrence: US)
  Receive Date: 20121206
  Receipt Date: 20121206
  Transmission Date: 20130627
  Serious: Yes (Other)
  Sender: FDA-Public Use
  Company Number: US-GLAXOSMITHKLINE-A1004412A

PATIENT
  Age: 69 Year
  Sex: Female
  Weight: 72.7 kg

DRUGS (11)
  1. TYKERB [Suspect]
     Indication: BREAST CANCER
     Dosage: 1250MG Per day
     Route: 048
     Dates: start: 20100813
  2. ANASTROZOLE [Concomitant]
  3. ADVAIR [Concomitant]
  4. PRAVASTATIN [Concomitant]
  5. CLONAZEPAM [Concomitant]
  6. LISINOPRIL + HYDROCHLOROTHIAZIDE [Concomitant]
  7. OMEPRAZOLE [Concomitant]
  8. KLOR-CON M [Concomitant]
  9. CITALOPRAM [Concomitant]
  10. SINGULAIR [Concomitant]
  11. ALENDRONATE [Concomitant]

REACTIONS (4)
  - Breast cancer [Unknown]
  - Breast cancer metastatic [Unknown]
  - Diarrhoea [Unknown]
  - Alopecia [Unknown]
